FAERS Safety Report 23595922 (Version 1)
Quarter: 2024Q1

REPORT INFORMATION
  Report Type: Spontaneous
  Country: US (occurrence: US)
  Receive Date: 20240305
  Receipt Date: 20240305
  Transmission Date: 20240410
  Serious: No
  Sender: FDA-Public Use
  Company Number: US-PFIZER INC-PV202400030267

PATIENT
  Age: 48 Year
  Sex: Female

DRUGS (1)
  1. NURTEC ODT [Suspect]
     Active Substance: RIMEGEPANT SULFATE
     Indication: Migraine
     Dosage: TAKE 1 TABLET AS NEEDED WITH THE LIMIT OF 1 TABLET A DAY AND 3 DAYS PER WEEK
     Route: 048

REACTIONS (4)
  - Menstruation irregular [Unknown]
  - Hypomenorrhoea [Unknown]
  - Diarrhoea [Unknown]
  - Poor quality sleep [Unknown]
